FAERS Safety Report 5018421-5 (Version None)
Quarter: 2006Q3

REPORT INFORMATION
  Report Type: 
  Country: None (occurrence: None)
  Receive Date: 20060530
  Receipt Date: 20060515
  Transmission Date: 20061208
  Serious: Yes (Hospitalization)
  Sender: FDA-Public Use
  Company Number: 2006RR-02156

PATIENT
  Sex: Female

DRUGS (4)
  1. AMOXICILLIN + CLAVULANATE POTASSIUM [Suspect]
     Dates: start: 19960101, end: 19960101
  2. LAMOTRIGINE [Suspect]
     Indication: CONVULSION
     Dosage: 75 MG, BID, ORAL
     Route: 048
  3. PHENYTOIN [Suspect]
     Indication: CONVULSION
     Dosage: 9 MG
  4. PHENOXYMETHYLPENICILLIN [Suspect]

REACTIONS (16)
  - ABNORMAL FAECES [None]
  - CANDIDIASIS [None]
  - CONVULSION [None]
  - DIARRHOEA [None]
  - DRUG INEFFECTIVE [None]
  - EPISTAXIS [None]
  - GASTROINTESTINAL DISORDER [None]
  - IMPAIRED HEALING [None]
  - LACTOSE INTOLERANCE [None]
  - MALNUTRITION [None]
  - PHARYNGEAL OEDEMA [None]
  - RASH GENERALISED [None]
  - UPPER LIMB FRACTURE [None]
  - UPPER RESPIRATORY TRACT INFECTION [None]
  - URINARY RETENTION [None]
  - VOMITING PROJECTILE [None]
